FAERS Safety Report 5225481-5 (Version None)
Quarter: 2007Q1

REPORT INFORMATION
  Report Type: 
  Country: None (occurrence: None)
  Receive Date: 20070131
  Receipt Date: 20070119
  Transmission Date: 20070707
  Serious: Yes (Other)
  Sender: FDA-Public Use
  Company Number: BR-PFIZER INC-2007000065

PATIENT
  Sex: Male

DRUGS (1)
  1. CAVERJECT POWDER, STERILE [Suspect]
     Indication: ERECTILE DYSFUNCTION
     Dosage: DAILY DOSE:10MG
     Route: 050

REACTIONS (4)
  - DRUG ADMINISTRATION ERROR [None]
  - PENILE SWELLING [None]
  - RADICAL PROSTATECTOMY [None]
  - SKIN DISCOLOURATION [None]
